FAERS Safety Report 24899765 (Version 1)
Quarter: 2025Q1

REPORT INFORMATION
  Report Type: Spontaneous
  Country: US (occurrence: None)
  Receive Date: 20250128
  Receipt Date: 20250128
  Transmission Date: 20250409
  Serious: No
  Sender: FDA-CTU
  Company Number: None

PATIENT
  Age: 75 Year
  Sex: Female
  Weight: 69.75 kg

DRUGS (5)
  1. XIIDRA [Suspect]
     Active Substance: LIFITEGRAST
     Indication: Dry eye
     Dosage: OTHER QUANTITY : 2 DROP(S);?FREQUENCY : AT BEDTIME;?
     Route: 047
     Dates: start: 20250123, end: 20250123
  2. LEVOTHYROXINE [Concomitant]
     Active Substance: LEVOTHYROXINE
  3. LATANOPROST [Concomitant]
     Active Substance: LATANOPROST
  4. METFORMIN [Concomitant]
     Active Substance: METFORMIN HYDROCHLORIDE
  5. SYSTANE PF [Concomitant]
     Active Substance: POLYETHYLENE GLYCOL 400\PROPYLENE GLYCOL

REACTIONS (7)
  - Eye irritation [None]
  - Ocular hyperaemia [None]
  - Eye pruritus [None]
  - Dysgeusia [None]
  - Allergic reaction to excipient [None]
  - Product use complaint [None]
  - Eye irritation [None]

NARRATIVE: CASE EVENT DATE: 20250123
